FAERS Safety Report 24633039 (Version 3)
Quarter: 2025Q3

REPORT INFORMATION
  Report Type: Report from Study
  Country: US (occurrence: US)
  Receive Date: 20241118
  Receipt Date: 20250802
  Transmission Date: 20251021
  Serious: Yes (Other)
  Sender: ALEXION PHARMACEUTICALS
  Company Number: US-AstraZeneca-CH-00745672A

PATIENT
  Sex: Female

DRUGS (2)
  1. DANICOPAN [Suspect]
     Active Substance: DANICOPAN
     Route: 065
  2. ULTOMIRIS [Suspect]
     Active Substance: RAVULIZUMAB-CWVZ
     Route: 065

REACTIONS (2)
  - Breakthrough haemolysis [Unknown]
  - Device issue [Unknown]
